FAERS Safety Report 17278835 (Version 2)
Quarter: 2020Q1

REPORT INFORMATION
  Report Type: Report from Study
  Country: US (occurrence: US)
  Receive Date: 20200116
  Receipt Date: 20200312
  Transmission Date: 20200409
  Serious: Yes (Other)
  Sender: FDA-Public Use
  Company Number: US-GILEAD-2020-0446817

PATIENT
  Age: 77 Year
  Sex: Female

DRUGS (2)
  1. AZTREONAM LYSINE [Suspect]
     Active Substance: AZTREONAM LYSINE
     Dosage: 75 MG THREE TIMES A DAY FOR 28 DAYS ON AND 28 DAYS OFF.
     Route: 055
     Dates: start: 20200131, end: 20200220
  2. AZTREONAM LYSINE [Suspect]
     Active Substance: AZTREONAM LYSINE
     Indication: MYCOBACTERIAL INFECTION
     Dosage: UNK, TID 28 DAYS ON AND 28 DAYS OFF.
     Route: 055
     Dates: start: 20190813

REACTIONS (6)
  - Off label use [Not Recovered/Not Resolved]
  - Cough [Unknown]
  - Dyspnoea [Unknown]
  - Chest discomfort [Recovering/Resolving]
  - Dyspnoea [Recovering/Resolving]
  - Mycobacterial infection [Unknown]

NARRATIVE: CASE EVENT DATE: 202002
